FAERS Safety Report 9364370 (Version 1)
Quarter: 2013Q2

REPORT INFORMATION
  Report Type: Spontaneous
  Country: GB (occurrence: GB)
  Receive Date: 20130624
  Receipt Date: 20130624
  Transmission Date: 20140414
  Serious: Yes (Other)
  Sender: FDA-Public Use
  Company Number: GB-ASTRAZENECA-2013SE42684

PATIENT
  Age: 70 Year
  Sex: Male

DRUGS (6)
  1. LIDOCAINE [Suspect]
     Indication: LOCAL ANAESTHESIA
     Route: 058
     Dates: start: 20130510, end: 20130510
  2. OPTIRAY [Suspect]
     Route: 042
     Dates: start: 20130510, end: 20130510
  3. AMLODIPINE [Concomitant]
     Route: 048
     Dates: start: 20130508
  4. DALTEPARIN [Concomitant]
     Route: 058
     Dates: start: 20130507
  5. LANSOPRAZOLE [Concomitant]
     Route: 048
     Dates: start: 20130507
  6. METOCLOPRAMIDE [Concomitant]
     Route: 048
     Dates: start: 20130508

REACTIONS (5)
  - Flushing [Recovered/Resolved]
  - Eye pruritus [Recovered/Resolved]
  - Hyperhidrosis [Recovered/Resolved]
  - Paraesthesia [Recovered/Resolved]
  - Blood pressure decreased [Recovered/Resolved]
